FAERS Safety Report 6249963-2 (Version None)
Quarter: 2009Q2

REPORT INFORMATION
  Report Type: 
  Country: None (occurrence: None)
  Receive Date: 20090625
  Receipt Date: 20090611
  Transmission Date: 20091009
  Serious: Yes (Hospitalization)
  Sender: FDA-Public Use
  Company Number: 2009SP001507

PATIENT
  Sex: Female
  Weight: 38.2 kg

DRUGS (10)
  1. XOPENEX [Suspect]
     Indication: CHRONIC OBSTRUCTIVE PULMONARY DISEASE
     Dosage: 1.25 MG/3ML;QID;INHALATION, 0.63 MG/3ML, QID
     Route: 055
     Dates: end: 20081001
  2. XOPENEX [Suspect]
     Indication: CHRONIC OBSTRUCTIVE PULMONARY DISEASE
     Dosage: 1.25 MG/3ML;QID;INHALATION, 0.63 MG/3ML, QID
     Route: 055
     Dates: start: 20081001, end: 20090301
  3. ALBUTEROL [Suspect]
  4. ADVAIR HFA [Concomitant]
  5. SPIRIVA [Concomitant]
  6. ZOLOFT [Concomitant]
  7. MUCINEX [Concomitant]
  8. XANAX [Concomitant]
  9. PREDNISONE TAB [Concomitant]
  10. PREV MEDS =UNKNOWN [Concomitant]

REACTIONS (9)
  - ABASIA [None]
  - ASTHENIA [None]
  - BLOOD DISORDER [None]
  - CHRONIC OBSTRUCTIVE PULMONARY DISEASE [None]
  - CONDITION AGGRAVATED [None]
  - DYSPHONIA [None]
  - FEELING ABNORMAL [None]
  - PNEUMONIA [None]
  - STREPTOCOCCAL INFECTION [None]
